FAERS Safety Report 9802233 (Version 1)
Quarter: 2014Q1

REPORT INFORMATION
  Report Type: Spontaneous
  Country: IE (occurrence: IE)
  Receive Date: 20140107
  Receipt Date: 20140107
  Transmission Date: 20141002
  Serious: Yes (Hospitalization)
  Sender: FDA-Public Use
  Company Number: IE-ELI_LILLY_AND_COMPANY-IE201401000449

PATIENT
  Sex: Male

DRUGS (1)
  1. EFIENT [Suspect]

REACTIONS (1)
  - Multiple fractures [Unknown]
